FAERS Safety Report 8985828 (Version 1)
Quarter: 2012Q4

REPORT INFORMATION
  Report Type: 
  Country: AU (occurrence: AU)
  Receive Date: 20121226
  Receipt Date: 20121226
  Transmission Date: 20130627
  Serious: Yes (Other)
  Sender: FDA-Public Use
  Company Number: AU-ASTRAZENECA-2012SE93578

PATIENT
  Age: 74 Year
  Sex: Male

DRUGS (3)
  1. NEXIUM HP7 [Suspect]
     Route: 048
     Dates: start: 20121204, end: 20121208
  2. AMOXICILLIN TRIHYDRATE [Suspect]
     Route: 048
     Dates: start: 20121204, end: 20121208
  3. CLARITHROMYCIN [Suspect]
     Route: 048
     Dates: start: 20121204, end: 20121208

REACTIONS (5)
  - Haematochezia [Not Recovered/Not Resolved]
  - Muscle spasms [Recovered/Resolved]
  - Anxiety [Not Recovered/Not Resolved]
  - Abdominal pain upper [Recovered/Resolved]
  - Diarrhoea [Recovered/Resolved]
